FAERS Safety Report 18714506 (Version 1)
Quarter: 2021Q1

REPORT INFORMATION
  Report Type: Spontaneous
  Country: US (occurrence: US)
  Receive Date: 20210107
  Receipt Date: 20210107
  Transmission Date: 20210419
  Serious: Yes (Other)
  Sender: FDA-Public Use
  Company Number: US-009507513-2101USA001533

PATIENT
  Age: 66 Year
  Sex: Male

DRUGS (1)
  1. KEYTRUDA [Suspect]
     Active Substance: PEMBROLIZUMAB
     Indication: PLEURAL MESOTHELIOMA MALIGNANT
     Dosage: 200 MILLIGRAM, Q3W
     Route: 048

REACTIONS (4)
  - Off label use [Unknown]
  - Immune-mediated hypothyroidism [Unknown]
  - Urticaria [Unknown]
  - Type 1 diabetes mellitus [Unknown]
